FAERS Safety Report 21587165 (Version 2)
Quarter: 2022Q4

REPORT INFORMATION
  Report Type: Spontaneous
  Country: US (occurrence: US)
  Receive Date: 20221114
  Receipt Date: 20221216
  Transmission Date: 20230112
  Serious: No
  Sender: FDA-Public Use
  Company Number: US-MICRO LABS LIMITED-ML2022-05322

PATIENT
  Age: 66 Year
  Sex: Male

DRUGS (1)
  1. DORZOLAMIDE\TIMOLOL [Suspect]
     Active Substance: DORZOLAMIDE\TIMOLOL
     Indication: Glaucoma
     Dosage: 1 DROP IN EACH EYE, ONCE DAILY AT NIGHT
     Route: 047

REACTIONS (2)
  - Product container issue [Unknown]
  - Product dose omission issue [Unknown]
